FAERS Safety Report 15596904 (Version 2)
Quarter: 2018Q4

REPORT INFORMATION
  Report Type: Spontaneous
  Country: GB (occurrence: GB)
  Receive Date: 20181108
  Receipt Date: 20181115
  Transmission Date: 20190205
  Serious: Yes (Other)
  Sender: FDA-Public Use
  Company Number: GB-TEVA-2018-GB-972273

PATIENT
  Age: 33 Year
  Sex: Female
  Weight: 88.9 kg

DRUGS (3)
  1. AMOXICILLIN. [Suspect]
     Active Substance: AMOXICILLIN
     Indication: ACUTE SINUSITIS
     Dosage: 1500 MILLIGRAM DAILY;
     Route: 065
     Dates: start: 20180625
  2. FOLIC ACID. [Concomitant]
     Active Substance: FOLIC ACID
     Route: 065
  3. SERTRALINE [Concomitant]
     Active Substance: SERTRALINE HYDROCHLORIDE
     Indication: ANXIETY
     Route: 065
     Dates: start: 201609

REACTIONS (3)
  - Maternal exposure during pregnancy [Unknown]
  - Genital pain [Recovered/Resolved]
  - Genital swelling [Recovered/Resolved]

NARRATIVE: CASE EVENT DATE: 20180627
